FAERS Safety Report 16295591 (Version 2)
Quarter: 2019Q2

REPORT INFORMATION
  Report Type: Spontaneous
  Country: US (occurrence: US)
  Receive Date: 20190509
  Receipt Date: 20190515
  Transmission Date: 20190711
  Serious: No
  Sender: FDA-Public Use
  Company Number: US-SA-2019SA121795

PATIENT
  Age: 81 Year
  Sex: Female

DRUGS (2)
  1. ALLEGRA ALLERGY [Suspect]
     Active Substance: FEXOFENADINE HYDROCHLORIDE
     Dosage: UNK UNK, UNK
     Route: 065
  2. ALLEGRA ALLERGY [Suspect]
     Active Substance: FEXOFENADINE HYDROCHLORIDE
     Dosage: 1 DF, 1X
     Route: 065
     Dates: start: 20190426, end: 20190427

REACTIONS (8)
  - Secretion discharge [Unknown]
  - Weight decreased [Unknown]
  - Pain [Unknown]
  - Nasopharyngitis [Unknown]
  - Exposure to violent event [Unknown]
  - Eating disorder [Unknown]
  - Asthenia [Unknown]
  - Cough [Unknown]
